FAERS Safety Report 7974667-5 (Version None)
Quarter: 2011Q4

REPORT INFORMATION
  Report Type: 
  Country: None (occurrence: None)
  Receive Date: 20111213
  Receipt Date: 20111205
  Transmission Date: 20120403
  Serious: Yes (Disabling)
  Sender: FDA-Public Use
  Company Number: PHHY2011FR107286

PATIENT
  Sex: Female

DRUGS (2)
  1. FASLODEX [Suspect]
     Dosage: 250MG/5ML TWICE EVERY MONTH
  2. ZOMETA [Suspect]
     Dosage: 4 MG, PER MONTH
     Dates: start: 20100705

REACTIONS (6)
  - SENSATION OF HEAVINESS [None]
  - GAIT DISTURBANCE [None]
  - DYSAESTHESIA [None]
  - SENSORY LOSS [None]
  - PARAESTHESIA [None]
  - GRIP STRENGTH DECREASED [None]
